FAERS Safety Report 7916505-2 (Version None)
Quarter: 2011Q4

REPORT INFORMATION
  Report Type: 
  Country: None (occurrence: None)
  Receive Date: 20111114
  Receipt Date: 20111102
  Transmission Date: 20120403
  Serious: Yes (Hospitalization, Other)
  Sender: FDA-Public Use
  Company Number: 1096898

PATIENT
  Sex: Male

DRUGS (2)
  1. ACYCLOVIR [Suspect]
     Indication: MENINGITIS
     Dosage: 850 EVERY EIGHT HOURS DAILY INTRAVENOUS DRIP
     Route: 041
     Dates: start: 20090804
  2. SODIUM CHLORIDE [Suspect]
     Indication: PRODUCT USED FOR UNKNOWN INDICATION
     Dosage: 500 ML,  EVERY EIGHT HOURS DAILY INTRAVENOUS DRIP
     Route: 041
     Dates: start: 20090804

REACTIONS (8)
  - NAUSEA [None]
  - DIZZINESS [None]
  - FLANK PAIN [None]
  - HEADACHE [None]
  - DIALYSIS [None]
  - OVERDOSE [None]
  - ASTHENIA [None]
  - RENAL FAILURE ACUTE [None]
